FAERS Safety Report 5120729-X (Version None)
Quarter: 2006Q4

REPORT INFORMATION
  Report Type: 
  Country: None (occurrence: None)
  Receive Date: 20061004
  Receipt Date: 20060725
  Transmission Date: 20070319
  Serious: Yes (Hospitalization)
  Sender: FDA-Public Use
  Company Number: IL-BRISTOL-MYERS SQUIBB COMPANY-13526777

PATIENT
  Age: 58 Year
  Sex: Male

DRUGS (10)
  1. CYTOXAN [Suspect]
     Indication: CHRONIC LYMPHOCYTIC LEUKAEMIA
     Route: 042
     Dates: start: 20060604, end: 20060606
  2. FLUDARABINE [Suspect]
     Indication: CHRONIC LYMPHOCYTIC LEUKAEMIA
     Route: 042
     Dates: start: 20060604, end: 20060606
  3. RECORMON [Concomitant]
     Route: 058
  4. AVLOSULFON [Concomitant]
     Route: 048
  5. IRON [Concomitant]
  6. NEUPOGEN [Concomitant]
     Route: 058
  7. CIPROFLOXACIN [Concomitant]
  8. AUGMENTIN [Concomitant]
  9. PIPERACILLIN SODIUM AND TAZOBACTAM SODIUM [Concomitant]
  10. ACYCLOVIR [Concomitant]
     Indication: PROPHYLAXIS

REACTIONS (7)
  - APHTHOUS STOMATITIS [None]
  - COUGH [None]
  - HEADACHE [None]
  - NEUTROPENIA [None]
  - PANCYTOPENIA [None]
  - PHARYNGOLARYNGEAL PAIN [None]
  - PYREXIA [None]
